FAERS Safety Report 4382469-4 (Version None)
Quarter: 2004Q2

REPORT INFORMATION
  Report Type: 
  Country: None (occurrence: None)
  Receive Date: 20040617
  Receipt Date: 20040603
  Transmission Date: 20050107
  Serious: Yes (Hospitalization)
  Sender: FDA-Public Use
  Company Number: 2004AP02749

PATIENT
  Age: 78 Year
  Sex: Female
  Weight: 38 kg

DRUGS (14)
  1. OMEPRAZOLE [Suspect]
     Indication: REFLUX OESOPHAGITIS
     Dosage: 20 MG DAILY PO
     Route: 048
     Dates: start: 20040424, end: 20040430
  2. FRANDOL [Concomitant]
  3. DAIKETYUTO [Concomitant]
  4. FERROMIA [Concomitant]
  5. SODIUM BICARBONATE [Concomitant]
  6. EPADEL [Concomitant]
  7. OPALMON [Concomitant]
  8. ALOSENN [Concomitant]
  9. LANSOPRAZOLE [Concomitant]
  10. CONTOMIN [Concomitant]
  11. TEGRETOL [Concomitant]
  12. UBRETID [Concomitant]
  13. MAGNESIUM OXIDE [Concomitant]
  14. AMLODIN [Concomitant]

REACTIONS (7)
  - CLOSTRIDIUM COLITIS [None]
  - CONDITION AGGRAVATED [None]
  - DECUBITUS ULCER [None]
  - GRANULOCYTOPENIA [None]
  - HYPONATRAEMIA [None]
  - INFECTED SKIN ULCER [None]
  - STAPHYLOCOCCAL INFECTION [None]
